FAERS Safety Report 6368431-0 (Version None)
Quarter: 2009Q3

REPORT INFORMATION
  Report Type: 
  Country: None (occurrence: None)
  Receive Date: 20090922
  Receipt Date: 20090915
  Transmission Date: 20100115
  Serious: Yes (Other)
  Sender: FDA-Public Use
  Company Number: US-AVENTIS-200918226US

PATIENT
  Sex: Male
  Weight: 100 kg

DRUGS (6)
  1. LOVENOX [Suspect]
     Indication: DEEP VEIN THROMBOSIS
     Route: 058
     Dates: start: 20090828, end: 20090910
  2. LOVENOX [Suspect]
     Dosage: DOSE: UNK
     Dates: start: 20090901, end: 20090911
  3. LOVENOX [Suspect]
     Dates: start: 20090914
  4. WARFARIN SODIUM [Concomitant]
     Dosage: DOSE: LITTLE BIT
  5. UNKNOWN DRUG [Concomitant]
     Dosage: DOSE: UNK
  6. ANALGESICS [Concomitant]
     Dosage: DOSE: UNK

REACTIONS (2)
  - FLUID RETENTION [None]
  - WEIGHT INCREASED [None]
